FAERS Safety Report 8509435-9 (Version None)
Quarter: 2012Q3

REPORT INFORMATION
  Report Type: 
  Country: None (occurrence: None)
  Receive Date: 20120713
  Receipt Date: 20120703
  Transmission Date: 20120928
  Serious: Yes (Other)
  Sender: FDA-Public Use
  Company Number: JP-ALLERGAN-1209336US

PATIENT
  Age: 65 Year

DRUGS (4)
  1. XALCOM [Concomitant]
     Indication: PRODUCT USED FOR UNKNOWN INDICATION
     Dosage: UNK
  2. ALPHAGAN [Suspect]
     Indication: GLAUCOMA
     Dosage: 1 GTT, B.I.D. EACH (BOTH EYES)
     Route: 047
     Dates: start: 20120612, end: 20120628
  3. HYALEIN [Concomitant]
     Indication: PRODUCT USED FOR UNKNOWN INDICATION
     Dosage: UNK
  4. SOFTEAR [Concomitant]
     Indication: PRODUCT USED FOR UNKNOWN INDICATION
     Dosage: UNK

REACTIONS (2)
  - ABASIA [None]
  - DIZZINESS [None]
